FAERS Safety Report 25874828 (Version 2)
Quarter: 2025Q4

REPORT INFORMATION
  Report Type: Spontaneous
  Country: JP (occurrence: JP)
  Receive Date: 20251002
  Receipt Date: 20251105
  Transmission Date: 20260118
  Serious: Yes (Other)
  Sender: NEUROCRINE BIOSCIENCES
  Company Number: JP-NEUROCRINE BIOSCIENCES INC.-2025NBI12690

PATIENT
  Age: 52 Year
  Sex: Female

DRUGS (5)
  1. VALBENAZINE [Suspect]
     Active Substance: VALBENAZINE
     Indication: Tardive dyskinesia
     Dosage: 40 MILLIGRAM, QD
     Route: 048
     Dates: start: 20240131
  2. OLANZAPINE [Concomitant]
     Active Substance: OLANZAPINE
     Dosage: 10 MILLIGRAM, QD
     Route: 065
  3. OLANZAPINE [Concomitant]
     Active Substance: OLANZAPINE
     Dosage: 15 MILLIGRAM, QD
     Route: 065
  4. DULOXETINE [Concomitant]
     Active Substance: DULOXETINE
     Dosage: 20 MILLIGRAM, QD
     Route: 065
  5. LURASIDONE [Concomitant]
     Active Substance: LURASIDONE
     Dosage: 20 MILLIGRAM, QD
     Dates: start: 202311

REACTIONS (1)
  - Major depression [Recovered/Resolved]
